FAERS Safety Report 25304308 (Version 1)
Quarter: 2025Q2

REPORT INFORMATION
  Report Type: Spontaneous
  Country: GR (occurrence: GR)
  Receive Date: 20250513
  Receipt Date: 20250513
  Transmission Date: 20250717
  Serious: Yes (Hospitalization)
  Sender: CELLTRION
  Company Number: GR-AMGEN-GRCSP2024216065

PATIENT

DRUGS (1)
  1. ADALIMUMAB [Suspect]
     Active Substance: ADALIMUMAB
     Indication: Ankylosing spondylitis
     Dosage: UNK, Q2WK (DOSAGE1: UNIT=NOT AVAILABLE)
     Route: 058

REACTIONS (1)
  - Familial mediterranean fever [Recovered/Resolved]

NARRATIVE: CASE EVENT DATE: 20230601
